FAERS Safety Report 9629897 (Version 3)
Quarter: 2013Q4

REPORT INFORMATION
  Report Type: Report from Study
  Country: JP (occurrence: JP)
  Receive Date: 20131017
  Receipt Date: 20131108
  Transmission Date: 20140711
  Serious: Yes (Hospitalization)
  Sender: FDA-Public Use
  Company Number: JP-009507513-1310JPN007004

PATIENT
  Age: 75 Year
  Sex: Male
  Weight: 53.6 kg

DRUGS (8)
  1. SITAGLIPTIN PHOSPHATE [Suspect]
     Indication: TYPE 2 DIABETES MELLITUS
     Dosage: UNK, QW
     Route: 048
     Dates: start: 20130419, end: 20130927
  2. FLIVAS [Concomitant]
     Indication: PROCEDURAL COMPLICATION
     Dosage: TOTAL DAILY DOSE 75 MG, QD
     Route: 048
     Dates: start: 20120816
  3. DIOVAN [Concomitant]
     Indication: PROCEDURAL COMPLICATION
     Dosage: TOTAL DAILY DOSE 40 MG, QD
     Route: 048
     Dates: start: 20120816
  4. SILECE [Concomitant]
     Indication: PROCEDURAL COMPLICATION
     Dosage: TOTAL DAILY DOSE 1.0 MG, QD
     Route: 048
     Dates: start: 20120816
  5. XARELTO [Concomitant]
     Indication: PROCEDURAL COMPLICATION
     Dosage: TOTAL DAILY DOSE 10 MG, QD
     Route: 048
     Dates: start: 20121214
  6. TENORMIN [Concomitant]
     Indication: PROCEDURAL COMPLICATION
     Dosage: TOTAL DAILY DOSE 12.5 MG, QD
     Route: 048
     Dates: start: 20121214
  7. SANCOBA [Concomitant]
     Indication: PROCEDURAL COMPLICATION
     Dosage: TOTAL DAILY DOSE 1 APPLICATION, TID
     Route: 047
     Dates: start: 20121116
  8. DIQUAS [Concomitant]
     Indication: PROCEDURAL COMPLICATION
     Dosage: TOTAL DAILY DOSE 1 APPLICATION
     Route: 047
     Dates: start: 20121029

REACTIONS (1)
  - Sick sinus syndrome [Recovered/Resolved]
